FAERS Safety Report 8243464-8 (Version None)
Quarter: 2012Q1

REPORT INFORMATION
  Report Type: 
  Country: None (occurrence: None)
  Receive Date: 20120329
  Receipt Date: 20120322
  Transmission Date: 20120608
  Serious: Yes (Other)
  Sender: FDA-Public Use
  Company Number: AT-UCBSA-050762

PATIENT
  Age: 31 Year
  Sex: Female
  Weight: 59 kg

DRUGS (7)
  1. CIMZIA [Suspect]
     Indication: RHEUMATOID ARTHRITIS
     Route: 058
     Dates: start: 20100301
  2. FRAGMIN  P FORTE [Concomitant]
     Dates: start: 20101101, end: 20110301
  3. HUMIRA [Concomitant]
     Indication: RHEUMATOID ARTHRITIS
     Dates: start: 20091001, end: 20101001
  4. DMARDS [Concomitant]
     Indication: RHEUMATOID ARTHRITIS
     Dates: start: 20070101
  5. LEVOTHYROXINE SODIUM [Concomitant]
  6. HEPARIN [Concomitant]
  7. FEMIBION [Concomitant]
     Dosage: 800

REACTIONS (3)
  - PREGNANCY [None]
  - BREECH PRESENTATION [None]
  - PLACENTA PRAEVIA [None]
